FAERS Safety Report 15555702 (Version 2)
Quarter: 2018Q4

REPORT INFORMATION
  Report Type: Spontaneous
  Country: IT (occurrence: IT)
  Receive Date: 20181026
  Receipt Date: 20181101
  Transmission Date: 20190205
  Serious: Yes (Other)
  Sender: FDA-Public Use
  Company Number: IT-PFIZER INC-2018434728

PATIENT
  Age: 32 Year
  Sex: Male

DRUGS (2)
  1. IDARUBICIN HCL [Suspect]
     Active Substance: IDARUBICIN HYDROCHLORIDE
     Indication: ACUTE MYELOID LEUKAEMIA
     Dosage: 12 MG/M2, 1X/DAY(12 MG/SQM, QD)
     Route: 065
  2. CYTARABINE. [Suspect]
     Active Substance: CYTARABINE
     Indication: ACUTE MYELOID LEUKAEMIA
     Dosage: 100 MG/M2, 1X/DAY(100 MG/SQM, QD)
     Route: 065

REACTIONS (4)
  - Epididymitis [Unknown]
  - Soft tissue infection [Unknown]
  - Pneumonia [Unknown]
  - Drug resistance [Unknown]
